FAERS Safety Report 9225104 (Version 4)
Quarter: 2013Q3

REPORT INFORMATION
  Report Type: Report from Study
  Country: GR (occurrence: GR)
  Receive Date: 20130411
  Receipt Date: 20130709
  Transmission Date: 20140515
  Serious: Yes (Life-Threatening, Hospitalization)
  Sender: FDA-Public Use
  Company Number: GR-JNJFOC-20130403549

PATIENT
  Sex: Male

DRUGS (1)
  1. REMICADE [Suspect]
     Indication: CROHN^S DISEASE
     Dosage: ^DOSE IN SERIES: 6^
     Route: 042
     Dates: start: 20120629, end: 20130221

REACTIONS (1)
  - Hodgkin^s disease [Recovering/Resolving]
